FAERS Safety Report 10746041 (Version 1)
Quarter: 2015Q1

REPORT INFORMATION
  Report Type: Spontaneous
  Country: US (occurrence: US)
  Receive Date: 20150128
  Receipt Date: 20150128
  Transmission Date: 20150721
  Serious: Yes (Death, Other)
  Sender: FDA-Public Use
  Company Number: US-BAYER-2015-008454

PATIENT
  Age: 65 Year
  Sex: Male

DRUGS (1)
  1. DIPHENHYDRAMINE HYDROCHLORIDE. [Suspect]
     Active Substance: DIPHENHYDRAMINE HYDROCHLORIDE

REACTIONS (9)
  - Respiratory depression [None]
  - Depressed level of consciousness [None]
  - Coma [None]
  - Delirium [None]
  - Dystonia [None]
  - Tremor [None]
  - Hyperreflexia [None]
  - Agitation [None]
  - Toxicity to various agents [Fatal]
